FAERS Safety Report 5903413-1 (Version None)
Quarter: 2008Q3

REPORT INFORMATION
  Report Type: 
  Country: None (occurrence: None)
  Receive Date: 20080930
  Receipt Date: 20080926
  Transmission Date: 20090109
  Serious: Yes (Hospitalization)
  Sender: FDA-Public Use
  Company Number: JP-BAYER-200811675BYL

PATIENT
  Age: 52 Year
  Sex: Male
  Weight: 65 kg

DRUGS (9)
  1. NEXAVAR [Suspect]
     Indication: RENAL CELL CARCINOMA STAGE IV
     Dosage: TOTAL DAILY DOSE: 800 MG  UNIT DOSE: 200 MG
     Route: 048
     Dates: start: 20080502, end: 20080711
  2. OXYCONTIN [Concomitant]
     Dosage: AS USED: 20 MG
     Route: 048
     Dates: start: 20080509
  3. OXINORM [Concomitant]
     Dosage: AS USED: 5 MG
     Route: 048
     Dates: start: 20080509
  4. LORFENAMIN [Concomitant]
     Dosage: AS USED: 60 MG
     Route: 048
     Dates: start: 20080509
  5. CELOOP [Concomitant]
     Dosage: AS USED: 150 MG  UNIT DOSE: 50 MG
     Route: 048
     Dates: start: 20080509
  6. PURSENNID [Concomitant]
     Dosage: AS USED: 24 MG
     Route: 048
     Dates: start: 20080509
  7. LENDORMIN D [Concomitant]
     Dosage: AS USED: 0.25 MG
     Route: 048
     Dates: start: 20080509
  8. MAGNESIUM OXIDE [Concomitant]
     Dosage: AS USED: 1.5 G
     Route: 048
     Dates: start: 20080509
  9. CIMETIRAN [Concomitant]
     Dosage: AS USED: 400 MG
     Route: 048
     Dates: start: 20080516

REACTIONS (5)
  - ALOPECIA [None]
  - HEPATIC FUNCTION ABNORMAL [None]
  - HYPERTENSION [None]
  - PALMAR-PLANTAR ERYTHRODYSAESTHESIA SYNDROME [None]
  - RASH [None]
